FAERS Safety Report 7180576-4 (Version None)
Quarter: 2010Q4

REPORT INFORMATION
  Report Type: 
  Country: None (occurrence: None)
  Receive Date: 20101221
  Receipt Date: 20101202
  Transmission Date: 20110411
  Serious: No
  Sender: FDA-Public Use
  Company Number: US-B.I. PHARMACEUTICALS,INC./RIDGEFIELD-2010-BP-13809BP

PATIENT
  Age: 77 Year
  Sex: Female

DRUGS (6)
  1. PRADAXA [Suspect]
     Indication: ATRIAL FIBRILLATION
     Dosage: 300 MG
     Route: 048
     Dates: start: 20101101
  2. PRADAXA [Suspect]
     Indication: CEREBROVASCULAR ACCIDENT PROPHYLAXIS
  3. TOPROL-XL [Concomitant]
  4. MONOPRIL [Concomitant]
  5. CELEBREX [Concomitant]
  6. HYDROCODONE BITARTRATE [Concomitant]

REACTIONS (2)
  - ASTHENIA [None]
  - FEELING ABNORMAL [None]
